FAERS Safety Report 16261117 (Version 4)
Quarter: 2019Q3

REPORT INFORMATION
  Report Type: Report from Study
  Country: US (occurrence: US)
  Receive Date: 20190501
  Receipt Date: 20190821
  Transmission Date: 20191004
  Serious: Yes (Hospitalization)
  Sender: FDA-Public Use
  Company Number: US-ACTELION-A-NJ2019-189877

PATIENT
  Age: 65 Year
  Sex: Female

DRUGS (2)
  1. UPTRAVI [Suspect]
     Active Substance: SELEXIPAG
     Indication: PULMONARY ARTERIAL HYPERTENSION
     Dosage: 800 MCG, BID
     Route: 048
     Dates: start: 20160505
  2. OXYGEN. [Concomitant]
     Active Substance: OXYGEN

REACTIONS (9)
  - Fatigue [Unknown]
  - Bronchitis [Unknown]
  - Syncope [Unknown]
  - Dyspnoea exertional [Unknown]
  - Blood glucose decreased [Unknown]
  - Asthenia [Unknown]
  - Pneumonia [Unknown]
  - Oxygen consumption increased [Unknown]
  - Fall [Unknown]

NARRATIVE: CASE EVENT DATE: 20190323
